FAERS Safety Report 10387220 (Version 1)
Quarter: 2014Q3

REPORT INFORMATION
  Report Type: Spontaneous
  Country: US (occurrence: None)
  Receive Date: 20140814
  Receipt Date: 20140814
  Transmission Date: 20150326
  Serious: Yes (Disabling)
  Sender: FDA-Public Use
  Company Number: None

PATIENT
  Age: 50 Year
  Sex: Female
  Weight: 54.43 kg

DRUGS (7)
  1. ALPRAZOLAM. [Concomitant]
     Active Substance: ALPRAZOLAM
  2. GABAPENTIN. [Concomitant]
     Active Substance: GABAPENTIN
  3. HYDROXYUREA. [Suspect]
     Active Substance: HYDROXYUREA
     Indication: PSORIASIS
     Dosage: 1 PILL
     Route: 048
     Dates: start: 1992, end: 2009
  4. OXYCODONE-ACETAMINOPHEN [Concomitant]
     Active Substance: ACETAMINOPHEN\OXYCODONE HYDROCHLORIDE
  5. ALEVE [Concomitant]
     Active Substance: NAPROXEN SODIUM
  6. RECLAST [Concomitant]
     Active Substance: ZOLEDRONIC ACID
  7. REMICADE [Concomitant]
     Active Substance: INFLIXIMAB

REACTIONS (6)
  - Gingival pain [None]
  - Lichen planus [None]
  - Dysgeusia [None]
  - Psoriatic arthropathy [None]
  - Thrombocytopenia [None]
  - Parosmia [None]

NARRATIVE: CASE EVENT DATE: 200510
